FAERS Safety Report 11268906 (Version 1)
Quarter: 2015Q3

REPORT INFORMATION
  Report Type: Spontaneous
  Country: US (occurrence: None)
  Receive Date: 20150710
  Receipt Date: 20150710
  Transmission Date: 20151125
  Serious: Yes (Hospitalization)
  Sender: FDA-Public Use
  Company Number: 15-07-001

PATIENT
  Age: 62 Year
  Sex: Male
  Weight: 104.33 kg

DRUGS (6)
  1. NEXIUM [Concomitant]
     Active Substance: ESOMEPRAZOLE MAGNESIUM
  2. ESOMEPRAZOLE [Concomitant]
     Active Substance: ESOMEPRAZOLE
  3. IMIPRAMINE [Concomitant]
     Active Substance: IMIPRAMINE
  4. CYMBALTA [Concomitant]
     Active Substance: DULOXETINE HYDROCHLORIDE
  5. CARBIDOPA. [Suspect]
     Active Substance: CARBIDOPA
     Indication: PRODUCT USED FOR UNKNOWN INDICATION
  6. GABAPENTIN. [Concomitant]
     Active Substance: GABAPENTIN

REACTIONS (7)
  - Acute prerenal failure [None]
  - Overdose [None]
  - Head injury [None]
  - Syncope [None]
  - Haemorrhage intracranial [None]
  - Fall [None]
  - Dehydration [None]

NARRATIVE: CASE EVENT DATE: 20140211
